FAERS Safety Report 6283905-9 (Version None)
Quarter: 2009Q3

REPORT INFORMATION
  Report Type: 
  Country: None (occurrence: None)
  Receive Date: 20090722
  Receipt Date: 20090722
  Transmission Date: 20100115
  Serious: Yes (Life-Threatening, Hospitalization, Disabling, Other)
  Sender: FDA-Public Use
  Company Number: None

PATIENT
  Age: 9 Year
  Sex: Male
  Weight: 24.9478 kg

DRUGS (7)
  1. ARIPIPRAZOLE [Suspect]
     Indication: AGGRESSION
     Dosage: 10MG TABLET -FOR TWO WEEKS BID PO
     Route: 048
     Dates: start: 20071016, end: 20071023
  2. ARIPIPRAZOLE [Suspect]
     Indication: BIPOLAR DISORDER
     Dosage: 10MG TABLET -FOR TWO WEEKS BID PO
     Route: 048
     Dates: start: 20071016, end: 20071023
  3. ARIPIPRAZOLE [Suspect]
     Dosage: INCREASE TO 15MG AFTER 2 WKS BID PO
     Route: 048
  4. CONCERTA [Concomitant]
  5. DEPAKOTE [Concomitant]
  6. ZYRTEC [Concomitant]
  7. SINGULAIR [Concomitant]

REACTIONS (8)
  - ABASIA [None]
  - DRUG INTOLERANCE [None]
  - DYSPHAGIA [None]
  - DYSTONIA [None]
  - PUPILS UNEQUAL [None]
  - SPEECH DISORDER [None]
  - STATUS EPILEPTICUS [None]
  - URINARY INCONTINENCE [None]
